FAERS Safety Report 13756596 (Version 1)
Quarter: 2017Q3

REPORT INFORMATION
  Report Type: Spontaneous
  Country: JP (occurrence: JP)
  Receive Date: 20170714
  Receipt Date: 20170714
  Transmission Date: 20171127
  Serious: Yes (Other)
  Sender: FDA-Public Use
  Company Number: JP-PFIZER INC-2017296970

PATIENT
  Age: 67 Year
  Sex: Male
  Weight: 62 kg

DRUGS (4)
  1. AMLODIPINE BESILATE W/CANDESARTAN CILEXETIL [Concomitant]
     Dosage: UNK UNK, UNKNOWN FREQ.
     Route: 048
  2. IRRIBOW [Concomitant]
     Active Substance: RAMOSETRON HYDROCHLORIDE
     Dosage: UNK UNK, UNKNOWN FREQ.
     Route: 065
  3. CELECOX [Suspect]
     Active Substance: CELECOXIB
     Indication: BACK PAIN
     Dosage: 100 MG, TWICE DAILY
     Route: 048
     Dates: start: 201611
  4. RABEPRAZOLE /01417202/ [Concomitant]
     Active Substance: RABEPRAZOLE SODIUM
     Dosage: UNK UNK, UNKNOWN FREQ.
     Route: 065

REACTIONS (1)
  - Interstitial lung disease [Unknown]

NARRATIVE: CASE EVENT DATE: 201611
